FAERS Safety Report 25677870 (Version 2)
Quarter: 2025Q3

REPORT INFORMATION
  Report Type: Spontaneous
  Country: EU (occurrence: EU)
  Receive Date: 20250813
  Receipt Date: 20250822
  Transmission Date: 20251021
  Serious: Yes (Other)
  Sender: SANDOZ
  Company Number: EU-AMGEN-DEUSP2025152448

PATIENT
  Age: 59 Year
  Sex: Male

DRUGS (20)
  1. ADALIMUMAB [Suspect]
     Active Substance: ADALIMUMAB
     Indication: Still^s disease
     Dosage: 40 MILLIGRAM, Q2WK (FOR 2 MONTHS)
     Route: 065
  2. ADALIMUMAB [Suspect]
     Active Substance: ADALIMUMAB
     Indication: VEXAS syndrome
  3. AZATHIOPRINE [Suspect]
     Active Substance: AZATHIOPRINE
     Indication: Antiinflammatory therapy
     Dosage: 75 MILLIGRAM, BID (FOR 1 MONTH)
     Route: 065
  4. AZATHIOPRINE [Suspect]
     Active Substance: AZATHIOPRINE
     Indication: Still^s disease
  5. ANAKINRA [Suspect]
     Active Substance: ANAKINRA
     Indication: Still^s disease
     Dosage: 1 MONTH, 100 MG/DAY
     Route: 065
  6. ANAKINRA [Suspect]
     Active Substance: ANAKINRA
     Indication: VEXAS syndrome
  7. CYCLOSPORINE [Suspect]
     Active Substance: CYCLOSPORINE
     Indication: VEXAS syndrome
     Dosage: 75 MILLIGRAM, BID
     Route: 065
  8. CYCLOSPORINE [Suspect]
     Active Substance: CYCLOSPORINE
     Indication: Still^s disease
  9. CANAKINUMAB [Suspect]
     Active Substance: CANAKINUMAB
     Indication: Still^s disease
     Route: 065
  10. CANAKINUMAB [Suspect]
     Active Substance: CANAKINUMAB
     Indication: VEXAS syndrome
  11. COLCHICINE [Suspect]
     Active Substance: COLCHICINE
     Indication: Still^s disease
     Dosage: 0.5 MILLIGRAM, BID
     Route: 065
  12. COLCHICINE [Suspect]
     Active Substance: COLCHICINE
     Indication: VEXAS syndrome
  13. METHOTREXATE [Suspect]
     Active Substance: METHOTREXATE
     Indication: Still^s disease
     Dosage: 10 MILLIGRAM, QD (FOR 6 MONTHS)
     Route: 048
  14. METHOTREXATE [Suspect]
     Active Substance: METHOTREXATE
     Indication: VEXAS syndrome
     Route: 058
  15. TOCILIZUMAB [Suspect]
     Active Substance: TOCILIZUMAB
     Indication: Still^s disease
     Route: 065
  16. TOCILIZUMAB [Suspect]
     Active Substance: TOCILIZUMAB
     Indication: VEXAS syndrome
  17. TOFACITINIB [Suspect]
     Active Substance: TOFACITINIB
     Indication: Still^s disease
     Dosage: 5 MILLIGRAM, BID
     Route: 065
  18. TOFACITINIB [Suspect]
     Active Substance: TOFACITINIB
     Indication: VEXAS syndrome
  19. UPADACITINIB [Suspect]
     Active Substance: UPADACITINIB
     Indication: Still^s disease
     Dosage: 15 MILLIGRAM, QD
     Route: 065
  20. UPADACITINIB [Suspect]
     Active Substance: UPADACITINIB
     Indication: VEXAS syndrome

REACTIONS (13)
  - Myelodysplastic syndrome [Unknown]
  - Cytokine release syndrome [Unknown]
  - Febrile neutropenia [Unknown]
  - Acute kidney injury [Unknown]
  - Adrenal insufficiency [Unknown]
  - Atrial fibrillation [Unknown]
  - Meningitis listeria [Unknown]
  - VEXAS syndrome [Recovered/Resolved]
  - Infection [Unknown]
  - Adverse drug reaction [Unknown]
  - Drug ineffective for unapproved indication [Unknown]
  - Off label use [Unknown]
  - Off label use [Recovered/Resolved]

NARRATIVE: CASE EVENT DATE: 20220201
